FAERS Safety Report 9416086 (Version 1)
Quarter: 2013Q3

REPORT INFORMATION
  Report Type: Spontaneous
  Country: US (occurrence: None)
  Receive Date: 20130723
  Receipt Date: 20130723
  Transmission Date: 20140515
  Serious: Yes (Other)
  Sender: FDA-Public Use
  Company Number: None

PATIENT
  Age: 15 Year
  Sex: Male
  Weight: 41.73 kg

DRUGS (2)
  1. GAMMAGARD [Suspect]
     Indication: MENINGITIS
     Dosage: 20 GRAMS EVERY 4 WEEKS IV DRIP
     Route: 041
     Dates: start: 20130718, end: 20130718
  2. GAMMAGARD [Suspect]
     Dosage: 20 GRAMS EVERY 4 WEEKS IV DRIP
     Route: 041
     Dates: start: 20130718, end: 20130718

REACTIONS (2)
  - Pruritus [None]
  - Urticaria [None]
